FAERS Safety Report 5449349-4 (Version None)
Quarter: 2007Q3

REPORT INFORMATION
  Report Type: 
  Country: None (occurrence: None)
  Receive Date: 20070907
  Receipt Date: 20070831
  Transmission Date: 20080115
  Serious: Yes (Other)
  Sender: FDA-Public Use
  Company Number: 17321

PATIENT
  Age: 3 Year
  Sex: Female

DRUGS (17)
  1. VINCRISTINE [Suspect]
     Indication: B PRECURSOR TYPE ACUTE LEUKAEMIA
     Dates: start: 20051106
  2. DOXORUBICIN HCL [Suspect]
     Indication: B PRECURSOR TYPE ACUTE LEUKAEMIA
     Dates: start: 20051106
  3. METHOTREXATE [Suspect]
     Indication: B PRECURSOR TYPE ACUTE LEUKAEMIA
     Dates: start: 20051106
  4. PREDNISOLONE [Suspect]
     Indication: B PRECURSOR TYPE ACUTE LEUKAEMIA
     Dates: start: 20051106
  5. MICONAZOLE [Concomitant]
  6. TAZOBACTAM [Concomitant]
  7. GENTAMICIN [Concomitant]
  8. FLUCONAZOLE DATES [Concomitant]
  9. CEFTAZIDIME [Concomitant]
  10. VANCOMYCIN [Concomitant]
  11. METRONIDAZOLE [Concomitant]
  12. ACYCLOVIR [Concomitant]
  13. OXYGEN [Concomitant]
  14. ERYTHROMYCIN [Concomitant]
  15. BACTRIM [Concomitant]
  16. AMBISOME [Concomitant]
  17. VORICONAZOLE [Concomitant]

REACTIONS (4)
  - DYSPHAGIA [None]
  - MUCOUS MEMBRANE DISORDER [None]
  - OESOPHAGEAL DISORDER [None]
  - OESOPHAGEAL STENOSIS [None]
